FAERS Safety Report 4330445-X (Version None)
Quarter: 2004Q1

REPORT INFORMATION
  Report Type: 
  Country: None (occurrence: None)
  Receive Date: 20040330
  Receipt Date: 20040318
  Transmission Date: 20041129
  Serious: Yes (Other)
  Sender: FDA-Public Use
  Company Number: 2004-03-1475

PATIENT
  Age: 54 Year
  Sex: Male
  Weight: 78 kg

DRUGS (4)
  1. TEMOZOLOMIDE CAPSULES [Suspect]
     Indication: GLIOBLASTOMA
     Dosage: 130 MG ORAL
     Route: 048
     Dates: start: 20040224, end: 20040315
  2. VALPROIC ACID TABLETS [Concomitant]
  3. DEXAMETHASONE [Concomitant]
  4. RANITIDINE [Concomitant]

REACTIONS (7)
  - ALANINE AMINOTRANSFERASE INCREASED [None]
  - ASPARTATE AMINOTRANSFERASE INCREASED [None]
  - BLOOD ALBUMIN DECREASED [None]
  - BLOOD ALKALINE PHOSPHATASE INCREASED [None]
  - BLOOD LACTATE DEHYDROGENASE INCREASED [None]
  - GAMMA-GLUTAMYLTRANSFERASE INCREASED [None]
  - JAUNDICE [None]
